FAERS Safety Report 10399738 (Version 1)
Quarter: 2014Q1

REPORT INFORMATION
  Report Type: Spontaneous
  Country: US (occurrence: None)
  Receive Date: 20130816
  Receipt Date: 20130816
  Transmission Date: 20141002
  Serious: Yes (Hospitalization, Other)
  Sender: FDA-Public Use
  Company Number: ADR-2008-5452

PATIENT
  Age: 40 Year
  Sex: Male

DRUGS (1)
  1. LIORESAL INTRATHECAL (BACLOFEN INJECTION) [Suspect]
     Indication: MUSCLE SPASTICITY
     Dosage: UNK MCG, DAILY, INTRATH
     Route: 037

REACTIONS (8)
  - Tachycardia [None]
  - Malaise [None]
  - Drug withdrawal syndrome [None]
  - Muscle spasms [None]
  - Hypotonia [None]
  - Therapeutic response decreased [None]
  - Paraesthesia [None]
  - Pruritus [None]
